FAERS Safety Report 5900797-5 (Version None)
Quarter: 2008Q3

REPORT INFORMATION
  Report Type: 
  Country: None (occurrence: None)
  Receive Date: 20080929
  Receipt Date: 20080918
  Transmission Date: 20090109
  Serious: Yes (Other)
  Sender: FDA-Public Use
  Company Number: GB-JNJFOC-20080701622

PATIENT
  Sex: Male

DRUGS (8)
  1. REMICADE [Suspect]
     Indication: RHEUMATOID ARTHRITIS
     Route: 042
  2. PREDNISOLONE [Concomitant]
  3. ACETAMINOPHEN [Concomitant]
  4. CODEINE PHOSPHATE [Concomitant]
  5. LANSOPRAZOLE [Concomitant]
  6. METHOTREXATE [Concomitant]
  7. FOLIC ACID [Concomitant]
  8. ORDANSETRON [Concomitant]

REACTIONS (1)
  - NON-HODGKIN'S LYMPHOMA [None]
